FAERS Safety Report 13999282 (Version 1)
Quarter: 2017Q3

REPORT INFORMATION
  Report Type: Spontaneous
  Country: GB (occurrence: GB)
  Receive Date: 20170922
  Receipt Date: 20170922
  Transmission Date: 20171128
  Serious: Yes (Hospitalization)
  Sender: FDA-Public Use
  Company Number: GB-PFIZER INC-2017406828

PATIENT
  Age: 15 Year
  Sex: Female
  Weight: 44 kg

DRUGS (16)
  1. PARACETAMOL [Concomitant]
     Active Substance: ACETAMINOPHEN
  2. METHOTREXATE SODIUM. [Suspect]
     Active Substance: METHOTREXATE SODIUM
     Indication: OSTEOSARCOMA
     Dosage: 3 CYCLES RECEIVED (CYCLE: 5 WEEKS, 1 WEEK DOXORUBICIN/CISPLATIN, 2 WEEKS REST, 2 WEEKS OF 2X METHOTR
     Route: 051
     Dates: start: 20160905, end: 20161221
  3. MORPHINE [Concomitant]
     Active Substance: MORPHINE
  4. MIFAMURTIDE [Concomitant]
     Active Substance: MIFAMURTIDE
  5. NOZINAN /00038601/ [Concomitant]
     Active Substance: LEVOMEPROMAZINE
  6. CISPLATIN. [Concomitant]
     Active Substance: CISPLATIN
     Indication: OSTEOSARCOMA
     Dosage: UNK
     Dates: start: 20160905
  7. DOXORUBICINE /00330901/ [Concomitant]
     Active Substance: DOXORUBICIN
     Indication: OSTEOSARCOMA
     Dosage: UNK
     Dates: start: 20160905
  8. NORTESTOSTERONE [Concomitant]
  9. PETHIDINE HYDROCHLORIDE [Concomitant]
     Active Substance: MEPERIDINE HYDROCHLORIDE
  10. TRAMADOL. [Concomitant]
     Active Substance: TRAMADOL
  11. MAGNESIUM [Concomitant]
     Active Substance: MAGNESIUM
  12. IBUPROFEN. [Concomitant]
     Active Substance: IBUPROFEN
  13. METOCLOPRAMIDE. [Concomitant]
     Active Substance: METOCLOPRAMIDE
  14. NABILONE [Concomitant]
     Active Substance: NABILONE
  15. ONDANSETRON HYDROCHLORIDE. [Concomitant]
     Active Substance: ONDANSETRON HYDROCHLORIDE
  16. POTASSIUM [Concomitant]
     Active Substance: POTASSIUM

REACTIONS (5)
  - Speech disorder [Not Recovered/Not Resolved]
  - Dyskinesia [Unknown]
  - Clumsiness [Unknown]
  - Encephalopathy [Recovered/Resolved]
  - Hemiparesis [Unknown]
